FAERS Safety Report 6246107-8 (Version None)
Quarter: 2009Q2

REPORT INFORMATION
  Report Type: 
  Country: None (occurrence: None)
  Receive Date: 20090626
  Receipt Date: 20090306
  Transmission Date: 20091009
  Serious: No
  Sender: FDA-Public Use
  Company Number: A0772096A

PATIENT
  Age: 53 Year
  Sex: Female

DRUGS (4)
  1. SUMATRIPTAN SUCCINATE [Suspect]
     Indication: MIGRAINE
     Route: 048
     Dates: start: 20090101, end: 20090101
  2. TYLOX [Concomitant]
  3. XANAX [Concomitant]
  4. PHENERGAN [Concomitant]

REACTIONS (4)
  - DRUG INEFFECTIVE [None]
  - OROPHARYNGEAL PAIN [None]
  - RASH [None]
  - VISION BLURRED [None]
